FAERS Safety Report 6634512-7 (Version None)
Quarter: 2010Q1

REPORT INFORMATION
  Report Type: 
  Country: None (occurrence: None)
  Receive Date: 20100311
  Receipt Date: 20100311
  Transmission Date: 20100710
  Serious: Yes (Hospitalization)
  Sender: FDA-Public Use
  Company Number: None

PATIENT
  Sex: Male
  Weight: 83.0083 kg

DRUGS (2)
  1. ASPIRIN [Suspect]
     Dosage: ASPIRIN DAILY PO
     Route: 048
     Dates: start: 20081118, end: 20100310
  2. PLAVIX [Suspect]
     Dosage: PLAVIX DAILY PO
     Route: 048
     Dates: start: 20081118, end: 20100310

REACTIONS (3)
  - CARDIAC FAILURE CONGESTIVE [None]
  - DYSPNOEA [None]
  - HYPERHIDROSIS [None]
